FAERS Safety Report 25818114 (Version 1)
Quarter: 2025Q3

REPORT INFORMATION
  Report Type: Spontaneous
  Country: US (occurrence: US)
  Receive Date: 20250918
  Receipt Date: 20250918
  Transmission Date: 20251021
  Serious: No
  Sender: AMGEN
  Company Number: US-AMGEN-USASP2025183465

PATIENT
  Age: 69 Year
  Sex: Female

DRUGS (2)
  1. REPATHA [Suspect]
     Active Substance: EVOLOCUMAB
     Indication: Blood cholesterol increased
     Dosage: 140 MILLIGRAM, Q2WK
     Route: 058
     Dates: start: 2025
  2. ZEPBOUND [Concomitant]
     Active Substance: TIRZEPATIDE
     Route: 065

REACTIONS (6)
  - Incorrect dose administered by device [Unknown]
  - Injection site erythema [Unknown]
  - Device difficult to use [Unknown]
  - Injection site pruritus [Unknown]
  - Injection site indentation [Unknown]
  - Wrong technique in product usage process [Unknown]

NARRATIVE: CASE EVENT DATE: 20250912
